FAERS Safety Report 12958538 (Version 1)
Quarter: 2016Q4

REPORT INFORMATION
  Report Type: Spontaneous
  Country: US (occurrence: US)
  Receive Date: 20161121
  Receipt Date: 20161121
  Transmission Date: 20170207
  Serious: No
  Sender: FDA-Public Use
  Company Number: US-TEVA-628359USA

PATIENT
  Sex: Female

DRUGS (1)
  1. CRYSELLE [Suspect]
     Active Substance: ETHINYL ESTRADIOL\NORGESTREL
     Indication: CONTRACEPTION
     Route: 065
     Dates: start: 20160115

REACTIONS (4)
  - Tension [Unknown]
  - Feeling abnormal [Unknown]
  - Panic attack [Unknown]
  - Discomfort [Unknown]
